FAERS Safety Report 14550966 (Version 1)
Quarter: 2018Q1

REPORT INFORMATION
  Report Type: Spontaneous
  Country: US (occurrence: US)
  Receive Date: 20180220
  Receipt Date: 20180220
  Transmission Date: 20180509
  Serious: No
  Sender: FDA-Public Use
  Company Number: US-TEVA-782519USA

PATIENT

DRUGS (1)
  1. ADDERALL XR [Suspect]
     Active Substance: AMPHETAMINE ASPARTATE\AMPHETAMINE SULFATE\DEXTROAMPHETAMINE SACCHARATE\DEXTROAMPHETAMINE SULFATE
     Indication: DISTURBANCE IN ATTENTION

REACTIONS (9)
  - Somnolence [Unknown]
  - Mood swings [Unknown]
  - Drug ineffective [Unknown]
  - Fatigue [Unknown]
  - Disturbance in attention [Unknown]
  - Adverse event [Unknown]
  - Impaired work ability [Unknown]
  - Product substitution issue [Unknown]
  - Depression [Unknown]
